FAERS Safety Report 4325301-7 (Version None)
Quarter: 2004Q1

REPORT INFORMATION
  Report Type: 
  Country: None (occurrence: None)
  Receive Date: 20040323
  Receipt Date: 20040316
  Transmission Date: 20041129
  Serious: Yes (Hospitalization)
  Sender: FDA-Public Use
  Company Number: 2004203949FR

PATIENT
  Age: 48 Year
  Sex: Female

DRUGS (7)
  1. DOXORUBICIN HCL [Suspect]
     Indication: BREAST CANCER METASTATIC
     Dosage: 92 MG, SINGLE, UNK
     Route: 065
     Dates: start: 20040206, end: 20040206
  2. TAXOL [Suspect]
     Indication: BREAST CANCER METASTATIC
     Dosage: 318 MG, SINGLE; IV
     Route: 042
     Dates: start: 20040206, end: 20040206
  3. APROVEL (IRBESARTAN) [Concomitant]
  4. INDAPAMIDE [Concomitant]
  5. NOVONORAM (REPAGLINIDE) [Concomitant]
  6. NEULASTA [Concomitant]
  7. CLASTOBAN (CLODRONATE DISODIUM) [Concomitant]

REACTIONS (8)
  - BLOOD BICARBONATE DECREASED [None]
  - BLOOD PH INCREASED [None]
  - COUGH [None]
  - FEBRILE NEUTROPENIA [None]
  - LUNG DISORDER [None]
  - PCO2 DECREASED [None]
  - PULMONARY EMBOLISM [None]
  - WHITE BLOOD CELL COUNT DECREASED [None]
